FAERS Safety Report 7198679-7 (Version None)
Quarter: 2010Q4

REPORT INFORMATION
  Report Type: 
  Country: None (occurrence: None)
  Receive Date: 20101227
  Receipt Date: 20101216
  Transmission Date: 20110411
  Serious: Yes (Hospitalization)
  Sender: FDA-Public Use
  Company Number: US-JNJFOC-20101105591

PATIENT
  Sex: Male
  Weight: 77.11 kg

DRUGS (3)
  1. REMICADE [Suspect]
     Indication: COLITIS ULCERATIVE
     Route: 042
  2. ACETAMINOPHEN [Concomitant]
     Indication: PAIN
     Route: 048
  3. ^SLEEPING PILLS^ [Concomitant]
     Indication: SLEEP DISORDER THERAPY

REACTIONS (10)
  - CHEST PAIN [None]
  - CHEST X-RAY ABNORMAL [None]
  - DYSPNOEA [None]
  - MUSCULAR WEAKNESS [None]
  - PAIN [None]
  - PERICARDIAL EFFUSION [None]
  - PLEURAL INFECTION [None]
  - PNEUMONIA [None]
  - TRANSIENT ISCHAEMIC ATTACK [None]
  - WEIGHT DECREASED [None]
